FAERS Safety Report 22066587 (Version 4)
Quarter: 2023Q4

REPORT INFORMATION
  Report Type: Spontaneous
  Country: US (occurrence: US)
  Receive Date: 20230306
  Receipt Date: 20231117
  Transmission Date: 20240110
  Serious: Yes (Death, Other)
  Sender: FDA-Public Use
  Company Number: US-PFIZER INC-PV202200108520

PATIENT
  Age: 75 Year
  Sex: Male

DRUGS (3)
  1. LORBRENA [Suspect]
     Active Substance: LORLATINIB
     Dosage: 100 MG
  2. TRIUMEQ [Suspect]
     Active Substance: ABACAVIR SULFATE\DOLUTEGRAVIR SODIUM\LAMIVUDINE
     Indication: HIV infection
     Dosage: UNK
     Dates: start: 20220528
  3. DELSTRIGO [Concomitant]
     Active Substance: DORAVIRINE\LAMIVUDINE\TENOFOVIR DISOPROXIL FUMARATE
     Indication: HIV infection
     Dosage: UNK
     Dates: start: 20220623

REACTIONS (5)
  - Death [Fatal]
  - Second primary malignancy [Unknown]
  - Brain neoplasm malignant [Unknown]
  - Myocardial injury [Unknown]
  - Palpitations [Unknown]
